FAERS Safety Report 21219835 (Version 2)
Quarter: 2022Q3

REPORT INFORMATION
  Report Type: Report from Study
  Country: EG (occurrence: EG)
  Receive Date: 20220817
  Receipt Date: 20220826
  Transmission Date: 20221027
  Serious: Yes (Death, Hospitalization)
  Sender: FDA-Public Use
  Company Number: EG-JNJFOC-20220818010

PATIENT
  Age: 69 Year
  Sex: Male
  Weight: 87 kg

DRUGS (14)
  1. DARZALEX [Suspect]
     Active Substance: DARATUMUMAB
     Indication: Plasma cell myeloma
     Dosage: 3.5 VIALS/WEEK
     Route: 065
     Dates: start: 20220619
  2. LANTUS [Concomitant]
     Active Substance: INSULIN GLARGINE
     Indication: Diabetes mellitus
  3. NOVORAPID [Concomitant]
     Active Substance: INSULIN ASPART
     Indication: Diabetes mellitus
  4. BISOPROLOL [Concomitant]
     Active Substance: BISOPROLOL
  5. ALBUMIN NOS [Concomitant]
  6. URSODIOL [Concomitant]
     Active Substance: URSODIOL
  7. NEURIMAX [Concomitant]
  8. CLOPIDOGREL [Concomitant]
     Active Substance: CLOPIDOGREL BISULFATE
  9. VITAMIN K [Concomitant]
     Active Substance: PHYTONADIONE
  10. FEBUXOSTAT [Concomitant]
     Active Substance: FEBUXOSTAT
     Indication: Blood uric acid increased
  11. FEBUXOSTAT [Concomitant]
     Active Substance: FEBUXOSTAT
     Indication: Blood creatinine increased
  12. FEBUXOSTAT [Concomitant]
     Active Substance: FEBUXOSTAT
     Indication: Blood urea increased
  13. CALMAG [CALCIUM;MAGNESIUM;VITAMIN D NOS] [Concomitant]
  14. BISOPROLOL FUMARATE [Concomitant]
     Active Substance: BISOPROLOL FUMARATE

REACTIONS (4)
  - Atrial fibrillation [Not Recovered/Not Resolved]
  - Death [Fatal]
  - Pleural effusion [Not Recovered/Not Resolved]
  - General physical health deterioration [Not Recovered/Not Resolved]

NARRATIVE: CASE EVENT DATE: 20220728
